FAERS Safety Report 7938608-9 (Version None)
Quarter: 2011Q4

REPORT INFORMATION
  Report Type: 
  Country: None (occurrence: None)
  Receive Date: 20111123
  Receipt Date: 20111110
  Transmission Date: 20120403
  Serious: Yes (Other)
  Sender: FDA-Public Use
  Company Number: US-WATSON-2011-18944

PATIENT
  Age: 3 Year
  Sex: Male

DRUGS (1)
  1. PREDNISONE TAB [Suspect]
     Indication: PEMPHIGUS
     Dosage: 140 MG DAILY
     Route: 048

REACTIONS (2)
  - OBESITY [None]
  - CUSHINGOID [None]
